FAERS Safety Report 6405670-4 (Version None)
Quarter: 2009Q4

REPORT INFORMATION
  Report Type: 
  Country: None (occurrence: None)
  Receive Date: 20091019
  Receipt Date: 20091013
  Transmission Date: 20100525
  Serious: Yes (Hospitalization)
  Sender: FDA-Public Use
  Company Number: B0598281A

PATIENT
  Sex: Male
  Weight: 86 kg

DRUGS (5)
  1. ONDANSETRON [Suspect]
     Indication: VOMITING
     Route: 048
     Dates: start: 20070910, end: 20070913
  2. IRINOTECAN HYDROCHLORIDE [Suspect]
     Dosage: 520MG PER DAY
     Dates: start: 20070910, end: 20070910
  3. FLUOROURACIL [Suspect]
     Dosage: 800MG PER DAY
     Dates: start: 20070910, end: 20070910
  4. FOLINIC ACID [Suspect]
     Dosage: 400MG PER DAY
     Dates: start: 20070910, end: 20070910
  5. BEVACIZUMAB [Suspect]
     Dosage: 430MG PER DAY
     Dates: start: 20070910, end: 20070910

REACTIONS (5)
  - DECREASED APPETITE [None]
  - DEHYDRATION [None]
  - DYSPNOEA EXERTIONAL [None]
  - GENERAL PHYSICAL HEALTH DETERIORATION [None]
  - SMALL INTESTINAL PERFORATION [None]
